FAERS Safety Report 25360509 (Version 1)
Quarter: 2025Q2

REPORT INFORMATION
  Report Type: Spontaneous
  Country: US (occurrence: US)
  Receive Date: 20250527
  Receipt Date: 20250527
  Transmission Date: 20250717
  Serious: Yes (Other)
  Sender: NOVO NORDISK
  Company Number: US-NOVOPROD-1437291

PATIENT
  Sex: Female

DRUGS (1)
  1. OZEMPIC [Suspect]
     Active Substance: SEMAGLUTIDE
     Indication: Latent autoimmune diabetes in adults

REACTIONS (4)
  - Cardiac operation [Recovered/Resolved]
  - Diabetic ketoacidosis [Unknown]
  - Illness [Recovered/Resolved]
  - Product use in unapproved indication [Unknown]
